FAERS Safety Report 10235968 (Version 1)
Quarter: 2014Q1

REPORT INFORMATION
  Report Type: Spontaneous
  Country: US (occurrence: None)
  Receive Date: 20140306
  Receipt Date: 20140306
  Transmission Date: 20141002
  Serious: Yes (Hospitalization, Disabling)
  Sender: FDA-Public Use
  Company Number: 163-21880-13103985

PATIENT
  Age: 64 Year
  Sex: Male

DRUGS (7)
  1. REVLIMIDE(LENALIDOMIDE)(5 MILLIGRAM, CAPSULES) [Suspect]
     Indication: AMYLOIDOSIS
     Route: 048
     Dates: start: 20130906, end: 20130915
  2. DECADRON(DEXAMETHASONE)(UKNOWN) [Concomitant]
  3. BUMEX(BUMETANIDE)(UKNOWN) [Concomitant]
  4. ZAROXOLYN(METOLAZONE)(UKNOWN) [Concomitant]
  5. KCL(POTASSIUM CHLORIDE)(UKNOWN) [Concomitant]
  6. LISINOPRIL(LISINOPRIL)(UKNOWN) [Concomitant]
  7. SIMVASTATIN(SIMVASTATIN)(UKNOWN) [Concomitant]

REACTIONS (6)
  - Hypotension [None]
  - Dizziness [None]
  - Presyncope [None]
  - Asthenia [None]
  - Rash generalised [None]
  - Urinary tract infection [None]
